FAERS Safety Report 5014583-4 (Version None)
Quarter: 2006Q2

REPORT INFORMATION
  Report Type: 
  Country: None (occurrence: None)
  Receive Date: 20060525
  Receipt Date: 20060505
  Transmission Date: 20061013
  Serious: Yes (Hospitalization)
  Sender: FDA-Public Use
  Company Number: US200605001537

PATIENT
  Age: 7 Year
  Sex: Female
  Weight: 33 kg

DRUGS (1)
  1. STRATTERA [Suspect]
     Indication: TOURETTE'S DISORDER
     Dosage: 40 MG, DAILY (1/D)
     Dates: start: 20060425, end: 20060427

REACTIONS (9)
  - GAIT DISTURBANCE [None]
  - JOINT SWELLING [None]
  - MEDICATION ERROR [None]
  - MOBILITY DECREASED [None]
  - OEDEMA PERIPHERAL [None]
  - PAIN IN EXTREMITY [None]
  - PHARMACEUTICAL PRODUCT COMPLAINT [None]
  - SWELLING FACE [None]
  - UNDERDOSE [None]
